FAERS Safety Report 22714949 (Version 2)
Quarter: 2024Q3

REPORT INFORMATION
  Report Type: Spontaneous
  Country: FR (occurrence: FR)
  Receive Date: 20230718
  Receipt Date: 20240723
  Transmission Date: 20241017
  Serious: No
  Sender: ALKEM
  Company Number: FR-ALKEM LABORATORIES LIMITED-FR-ALKEM-2022-15352

PATIENT
  Age: 54 Year
  Sex: Female

DRUGS (11)
  1. DRONABINOL [Suspect]
     Active Substance: DRONABINOL
     Indication: Neuralgia
     Dosage: 2.5 MILLIGRAM, BID (SOFT CAPSULE)
     Route: 065
     Dates: start: 20220615
  2. DRONABINOL [Suspect]
     Active Substance: DRONABINOL
     Dosage: 2.5 MILLIGRAM, OD (ONCE DAILY) EVENING
     Route: 065
     Dates: end: 20231006
  3. ACETAMINOPHEN\CAFFEINE [Concomitant]
     Active Substance: ACETAMINOPHEN\CAFFEINE
     Indication: Product used for unknown indication
     Dosage: UNK
     Route: 065
  4. Eupantol 40 [Concomitant]
     Indication: Gastrointestinal disorder prophylaxis
     Dosage: UNK
     Route: 065
  5. Fluoxetine 20 [Concomitant]
     Indication: Product used for unknown indication
     Dosage: UNK
     Route: 065
  6. KETAMINE [Concomitant]
     Active Substance: KETAMINE
     Indication: Product used for unknown indication
     Dosage: UNK
     Route: 065
  7. LAMICTAL [Concomitant]
     Active Substance: LAMOTRIGINE
     Indication: Product used for unknown indication
     Dosage: UNK
     Route: 065
  8. LEVOTHYROXINE [Concomitant]
     Active Substance: LEVOTHYROXINE\LEVOTHYROXINE SODIUM
     Indication: Thyroid disorder
     Dosage: UNK
     Route: 065
  9. Oxynorm 5/Oxycontin LP 10 [Concomitant]
     Indication: Product used for unknown indication
     Dosage: UNK
     Route: 065
  10. Oxynorm 5/Oxycontin LP 10 [Concomitant]
     Dosage: UNK
     Route: 065
  11. Relpax 40 [Concomitant]
     Indication: Migraine
     Dosage: UNK
     Route: 065

REACTIONS (1)
  - Gastrooesophageal reflux disease [Recovered/Resolved]

NARRATIVE: CASE EVENT DATE: 20220923
